FAERS Safety Report 4620926-3 (Version None)
Quarter: 2005Q1

REPORT INFORMATION
  Report Type: 
  Country: None (occurrence: None)
  Receive Date: 20050325
  Receipt Date: 20050314
  Transmission Date: 20050727
  Serious: Yes (Hospitalization)
  Sender: FDA-Public Use
  Company Number: A01200501540

PATIENT
  Age: 84 Year
  Sex: Female

DRUGS (9)
  1. PLAVIX [Suspect]
     Dosage: 75 MG QD, 1 UNIT QD ORAL
     Route: 048
     Dates: end: 20040607
  2. MOBIC [Suspect]
     Dosage: ORAL
     Route: 048
     Dates: end: 20040604
  3. SORBITOL [Concomitant]
  4. MIANSERIN HCL (MIANSERIN HYDROCHLORIDE) [Concomitant]
  5. LESCOL [Concomitant]
  6. OMEPRAZOLE [Concomitant]
  7. THYROXINE SODIUM [Concomitant]
  8. ENALAPRIL MALEATE [Concomitant]
  9. LERCANIDIPINE HCL (LERCANIDIPINE HYDROCHLORIDE) [Concomitant]

REACTIONS (5)
  - ABDOMINAL PAIN UPPER [None]
  - BARRETT'S OESOPHAGUS [None]
  - GASTRITIS [None]
  - RECTAL HAEMORRHAGE [None]
  - REFLUX OESOPHAGITIS [None]
